FAERS Safety Report 17215339 (Version 1)
Quarter: 2019Q4

REPORT INFORMATION
  Report Type: Spontaneous
  Country: US (occurrence: US)
  Receive Date: 20191206
  Receipt Date: 20191206
  Transmission Date: 20200122
  Serious: No
  Sender: FDA-Public Use
  Company Number: None

PATIENT
  Age: 39 Year
  Sex: Female

DRUGS (2)
  1. REBIF REBIDOSE [Suspect]
     Active Substance: INTERFERON BETA-1A
  2. REBIF REBIDOSE [Suspect]
     Active Substance: INTERFERON BETA-1A
     Route: 058
     Dates: start: 201907

REACTIONS (1)
  - Product dispensing error [None]

NARRATIVE: CASE EVENT DATE: 20191203
